FAERS Safety Report 5708531-9 (Version None)
Quarter: 2008Q2

REPORT INFORMATION
  Report Type: 
  Country: None (occurrence: None)
  Receive Date: 20080417
  Receipt Date: 20080407
  Transmission Date: 20081010
  Serious: Yes (Other)
  Sender: FDA-Public Use
  Company Number: MY-PFIZER INC-2008031187

PATIENT
  Age: 55 Year
  Sex: Female

DRUGS (8)
  1. NORVASC [Suspect]
     Indication: HYPERTENSION
     Dosage: DAILY DOSE:10MG
     Route: 048
  2. NORVASC [Suspect]
     Indication: MYOCARDIAL ISCHAEMIA
  3. FUROSEMIDE [Suspect]
     Indication: RENAL FAILURE CHRONIC
     Route: 048
  4. INSULIN [Concomitant]
  5. TICLOPIDINE HCL [Concomitant]
  6. SIMVASTATIN [Concomitant]
  7. METOPROLOL TARTRATE [Concomitant]
  8. METHYLDOPA [Concomitant]

REACTIONS (6)
  - DEAFNESS [None]
  - NAUSEA [None]
  - PERIORBITAL OEDEMA [None]
  - TINNITUS [None]
  - VERTIGO [None]
  - VOMITING [None]
